FAERS Safety Report 24544205 (Version 1)
Quarter: 2024Q4

REPORT INFORMATION
  Report Type: Report from Study
  Country: EG (occurrence: EG)
  Receive Date: 20241024
  Receipt Date: 20241024
  Transmission Date: 20250114
  Serious: Yes (Hospitalization)
  Sender: SANDOZ
  Company Number: EG-SANDOZ-SDZ2024EG055514

PATIENT
  Age: 11 Year
  Sex: Female

DRUGS (2)
  1. HYRIMOZ [Suspect]
     Active Substance: ADALIMUMAB-ADAZ
     Dosage: 40 MG, Q2W, 40 MG EVERY OTHER WEEK (MEDICATION ERROR  AND REPORTED BEFORE WITH MRD 04-JUNE-  2024),L
     Route: 058
     Dates: start: 20240603
  2. HYRIMOZ [Suspect]
     Active Substance: ADALIMUMAB-ADAZ
     Indication: Uveitis
     Dosage: UNK
     Route: 065

REACTIONS (3)
  - Inflammation [Not Recovered/Not Resolved]
  - Localised infection [Not Recovered/Not Resolved]
  - Product prescribing error [Unknown]

NARRATIVE: CASE EVENT DATE: 20240801
